FAERS Safety Report 8833855 (Version 1)
Quarter: 2012Q4

REPORT INFORMATION
  Report Type: 
  Country: NL (occurrence: NL)
  Receive Date: 20121010
  Receipt Date: 20121010
  Transmission Date: 20130627
  Serious: Yes (Other)
  Sender: FDA-Public Use
  Company Number: NL-ELI_LILLY_AND_COMPANY-NL201209006180

PATIENT
  Sex: Male
  Weight: 36 kg

DRUGS (2)
  1. STRATTERA [Suspect]
     Indication: ATTENTION DEFICIT/HYPERACTIVITY DISORDER
     Dosage: 18 mg, UNK
     Dates: start: 20120208
  2. STRATTERA [Suspect]
     Dosage: 40 mg, UNK
     Route: 048
     Dates: start: 20120216, end: 20120321

REACTIONS (1)
  - Suicidal ideation [Unknown]
